FAERS Safety Report 21477206 (Version 1)
Quarter: 2022Q4

REPORT INFORMATION
  Report Type: Spontaneous
  Country: US (occurrence: US)
  Receive Date: 20221019
  Receipt Date: 20221019
  Transmission Date: 20230113
  Serious: No
  Sender: FDA-Public Use
  Company Number: US-APOTEX-2022AP010665

PATIENT
  Sex: Female

DRUGS (2)
  1. AZELASTINE HYDROCHLORIDE [Suspect]
     Active Substance: AZELASTINE HYDROCHLORIDE
     Indication: Sinusitis
     Dosage: 4 DOSAGE FORM, QD (2 SPRAYS IN EACH NOSTRIL ONCE A DAY)
     Route: 045
     Dates: end: 202201
  2. CLARITHROMYCIN [Concomitant]
     Active Substance: CLARITHROMYCIN
     Indication: Product used for unknown indication
     Dosage: UNK
     Route: 065

REACTIONS (4)
  - Malaise [Recovered/Resolved]
  - Product taste abnormal [Unknown]
  - Inappropriate schedule of product administration [Unknown]
  - Nausea [Recovered/Resolved]
